FAERS Safety Report 23793336 (Version 2)
Quarter: 2024Q2

REPORT INFORMATION
  Report Type: Spontaneous
  Country: BR (occurrence: BR)
  Receive Date: 20240429
  Receipt Date: 20240507
  Transmission Date: 20240715
  Serious: Yes (Other)
  Sender: FDA-Public Use
  Company Number: BR-009507513-2404BRA011819

PATIENT
  Age: 76 Year
  Sex: Male

DRUGS (1)
  1. PEMBROLIZUMAB [Suspect]
     Active Substance: PEMBROLIZUMAB
     Indication: Oesophageal squamous cell carcinoma
     Dosage: UNK

REACTIONS (4)
  - Malignant neoplasm oligoprogression [Unknown]
  - Autoimmune hepatitis [Unknown]
  - Skin reaction [Unknown]
  - Lymphadenopathy [Unknown]
